FAERS Safety Report 9249042 (Version 1)
Quarter: 2013Q1

REPORT INFORMATION
  Report Type: Spontaneous
  Country: US (occurrence: None)
  Receive Date: 20130305
  Receipt Date: 20130305
  Transmission Date: 20140127
  Serious: Yes (Hospitalization)
  Sender: FDA-Public Use
  Company Number: 163-21880-12061590

PATIENT
  Age: 71 Year
  Sex: Female
  Weight: 79.4 kg

DRUGS (6)
  1. REVLIMID (LENALIDOMIDE) [Suspect]
     Indication: PLASMA CELL MYELOMA
     Route: 048
     Dates: start: 201110
  2. SYNTHROID (LEVOTHYROXINE SODIUM) [Concomitant]
  3. LOSARTAN (LOSARTAN) [Concomitant]
  4. MICARDIS (TELMISARTAN) [Concomitant]
  5. VALTREX (VALACICLOVIR HYDROCHLORIDE) [Concomitant]
  6. ASPIRIN (ACETYLSALICYLIC ACID) [Concomitant]

REACTIONS (2)
  - Clostridial infection [None]
  - Diverticulitis [None]
